FAERS Safety Report 6928204-4 (Version None)
Quarter: 2010Q3

REPORT INFORMATION
  Report Type: 
  Country: None (occurrence: None)
  Receive Date: 20100817
  Receipt Date: 20100809
  Transmission Date: 20110219
  Serious: Yes (Other)
  Sender: FDA-Public Use
  Company Number: DE-ROCHE-704408

PATIENT
  Sex: Female
  Weight: 70 kg

DRUGS (3)
  1. BONIVA [Suspect]
     Indication: OSTEOPOROSIS
     Route: 048
     Dates: start: 20071115
  2. CALCIGEN D [Concomitant]
     Indication: OSTEOPOROSIS
     Dosage: DOSE: 600/400 TWICE DAILY
     Route: 048
     Dates: start: 20071115
  3. VIGANTOL [Concomitant]
     Indication: OSTEOPOROSIS
     Route: 048
     Dates: start: 20071115

REACTIONS (5)
  - ABSCESS [None]
  - APICAL GRANULOMA [None]
  - INFLAMMATION [None]
  - PAIN IN JAW [None]
  - TOOTH DISORDER [None]
